FAERS Safety Report 11716046 (Version 2)
Quarter: 2015Q4

REPORT INFORMATION
  Report Type: Spontaneous
  Country: US (occurrence: US)
  Receive Date: 20151104
  Receipt Date: 20151110
  Transmission Date: 20160304
  Serious: No
  Sender: FDA-Public Use
  Company Number: US-ELI_LILLY_AND_COMPANY-US201108008032

PATIENT
  Sex: Female

DRUGS (2)
  1. FORTEO [Suspect]
     Active Substance: TERIPARATIDE
     Dosage: 20 UG, UNK
     Route: 065
  2. FORTEO [Suspect]
     Active Substance: TERIPARATIDE
     Dosage: 20 UG, UNK
     Route: 065

REACTIONS (8)
  - Bone disorder [Unknown]
  - Balance disorder [Unknown]
  - Intentional product misuse [Recovered/Resolved]
  - Osteoporosis [Unknown]
  - Nasopharyngitis [Unknown]
  - Movement disorder [Unknown]
  - Limb discomfort [Unknown]
  - Asthenia [Unknown]
